FAERS Safety Report 25311606 (Version 1)
Quarter: 2025Q2

REPORT INFORMATION
  Report Type: Other
  Country: US (occurrence: US)
  Receive Date: 20250514
  Receipt Date: 20250514
  Transmission Date: 20250716
  Serious: Yes (Other)
  Sender: B BRAUN
  Company Number: US-B.Braun Medical Inc.-2176657

PATIENT
  Age: 80 Year
  Sex: Female

DRUGS (3)
  1. SODIUM CHLORIDE [Suspect]
     Active Substance: SODIUM CHLORIDE
     Indication: Constipation
  2. MINERAL OIL [Suspect]
     Active Substance: MINERAL OIL
  3. GLYCERIN [Suspect]
     Active Substance: GLYCERIN

REACTIONS (2)
  - Pseudomembranous colitis [Recovered/Resolved]
  - Off label use [Recovered/Resolved]
